FAERS Safety Report 14524314 (Version 4)
Quarter: 2024Q1

REPORT INFORMATION
  Report Type: Spontaneous
  Country: US (occurrence: US)
  Receive Date: 20180213
  Receipt Date: 20240227
  Transmission Date: 20240410
  Serious: No
  Sender: FDA-Public Use
  Company Number: US-PFIZER INC-2018057323

PATIENT
  Age: 35 Year
  Sex: Female

DRUGS (1)
  1. ARGININE HYDROCHLORIDE [Suspect]
     Active Substance: ARGININE HYDROCHLORIDE
     Dosage: UNK

REACTIONS (2)
  - Drug hypersensitivity [Unknown]
  - Urticaria [Unknown]
